FAERS Safety Report 9826526 (Version 1)
Quarter: 2014Q1

REPORT INFORMATION
  Report Type: Spontaneous
  Country: US (occurrence: US)
  Receive Date: 20140117
  Receipt Date: 20140117
  Transmission Date: 20141002
  Serious: No
  Sender: FDA-Public Use
  Company Number: US-BIOGENIDEC-2014BI002231

PATIENT
  Age: 63 Year
  Sex: Female

DRUGS (4)
  1. TECFIDERA [Suspect]
     Indication: MULTIPLE SCLEROSIS
     Route: 048
     Dates: start: 201310
  2. PAXIL [Concomitant]
  3. DOXYCYCLINE [Concomitant]
  4. PREVACID [Concomitant]

REACTIONS (3)
  - Pruritus [Recovered/Resolved]
  - Ankle fracture [Recovered/Resolved]
  - Depression [Not Recovered/Not Resolved]
